FAERS Safety Report 8201175 (Version 2)
Quarter: 2012Q4

REPORT INFORMATION
  Report Type: 
  Country: PL (occurrence: PL)
  Receive Date: 20111026
  Receipt Date: 20121128
  Transmission Date: 20130627
  Serious: Yes (Death, Other)
  Sender: FDA-Public Use
  Company Number: PL-PFIZER INC-2011254679

PATIENT
  Age: 68 Year
  Sex: Male

DRUGS (6)
  1. METHYLPREDNISOLONE SODIUM SUCCINATE [Suspect]
     Dosage: 500 mg, ^3 pulses^
     Route: 042
  2. PREDNISONE [Suspect]
     Dosage: 60 mg/day
  3. PREDNISONE [Suspect]
     Dosage: 45 mg/day
  4. METHOTREXATE [Suspect]
     Dosage: 20 mg, weekly
  5. COLCHICINE [Suspect]
     Dosage: 0.5 mg/day
  6. COLCHICINE [Suspect]
     Dosage: 1 mg/day

REACTIONS (4)
  - Sepsis [Fatal]
  - Immunosuppression [Fatal]
  - Inflammation [Unknown]
  - Drug ineffective [Unknown]
